FAERS Safety Report 7454855-7 (Version None)
Quarter: 2011Q2

REPORT INFORMATION
  Report Type: 
  Country: None (occurrence: None)
  Receive Date: 20110425
  Receipt Date: 20110411
  Transmission Date: 20111010
  Serious: Yes (Other)
  Sender: FDA-Public Use
  Company Number: 885294

PATIENT
  Age: 79 Year
  Sex: Female

DRUGS (2)
  1. DOXORUBICIN HYDROCHLORIDE [Suspect]
     Indication: PRODUCT USED FOR UNKNOWN INDICATION
     Dosage: CYCLICAL
  2. CARBOPLATIN [Suspect]
     Indication: PRODUCT USED FOR UNKNOWN INDICATION
     Dosage: CYCLICAL;

REACTIONS (8)
  - INSOMNIA [None]
  - BLISTER [None]
  - CONSTIPATION [None]
  - RASH [None]
  - JOINT SWELLING [None]
  - ASTHENIA [None]
  - PALPITATIONS [None]
  - FATIGUE [None]
